FAERS Safety Report 9993565 (Version 1)
Quarter: 2014Q1

REPORT INFORMATION
  Report Type: Spontaneous
  Country: AR (occurrence: AR)
  Receive Date: 20140310
  Receipt Date: 20140310
  Transmission Date: 20141002
  Serious: Yes (Life-Threatening)
  Sender: FDA-Public Use
  Company Number: AR-UCBSA-114308

PATIENT
  Age: 48 Year
  Sex: 0

DRUGS (2)
  1. CIMZIA [Suspect]
     Indication: RHEUMATOID ARTHRITIS
     Dosage: INDUCTION DOSE
     Route: 058
     Dates: start: 201306
  2. CIMZIA [Suspect]
     Indication: RHEUMATOID ARTHRITIS
     Route: 058
     Dates: end: 201310

REACTIONS (1)
  - Non-Hodgkin^s lymphoma [Unknown]
